FAERS Safety Report 5318633-7 (Version None)
Quarter: 2007Q2

REPORT INFORMATION
  Report Type: 
  Country: None (occurrence: None)
  Receive Date: 20070508
  Receipt Date: 20070430
  Transmission Date: 20071010
  Serious: Yes (Other)
  Sender: FDA-Public Use
  Company Number: PHEH2007US06653

PATIENT
  Age: 70 Year

DRUGS (1)
  1. ZELNORM [Suspect]
     Indication: IRRITABLE BOWEL SYNDROME
     Dosage: 6 MG, BID
     Route: 048
     Dates: start: 20050101, end: 20070201

REACTIONS (4)
  - AMNESIA [None]
  - BREAST SWELLING [None]
  - BREAST TENDERNESS [None]
  - HAEMATOCHEZIA [None]
